FAERS Safety Report 18004266 (Version 4)
Quarter: 2020Q4

REPORT INFORMATION
  Report Type: Report from Study
  Country: FR (occurrence: FR)
  Receive Date: 20200709
  Receipt Date: 20201015
  Transmission Date: 20210113
  Serious: Yes (Other)
  Sender: FDA-Public Use
  Company Number: FR-JNJFOC-20200536842

PATIENT
  Age: 43 Year
  Sex: Female
  Weight: 56 kg

DRUGS (4)
  1. STELARA [Suspect]
     Active Substance: USTEKINUMAB
     Indication: PSORIASIS
     Dosage: WEEK 4 ON 20-NOV-2017, EVERY 12 WEEKS FROM 18-DEC-2017, LATEST ADMINISTERED ON 05-MAY-2020
     Route: 058
     Dates: start: 20171120
  2. EPIDUO [Concomitant]
     Active Substance: ADAPALENE\BENZOYL PEROXIDE
     Route: 065
     Dates: start: 20171120
  3. OPTIMIZETTE [Concomitant]
     Active Substance: DESOGESTREL
     Route: 065
     Dates: start: 20160909
  4. NEXIUM [Concomitant]
     Active Substance: ESOMEPRAZOLE MAGNESIUM
     Indication: DYSPEPSIA
     Route: 065
     Dates: start: 20191110, end: 20200505

REACTIONS (1)
  - Papilloma viral infection [Recovered/Resolved]

NARRATIVE: CASE EVENT DATE: 201811
